FAERS Safety Report 17817452 (Version 1)
Quarter: 2020Q2

REPORT INFORMATION
  Report Type: Spontaneous
  Country: SE (occurrence: SE)
  Receive Date: 20200522
  Receipt Date: 20200522
  Transmission Date: 20200714
  Serious: Yes (Hospitalization)
  Sender: FDA-Public Use
  Company Number: SE-TEVA-2020-SE-1238216

PATIENT
  Sex: Male

DRUGS (2)
  1. TREO [Suspect]
     Active Substance: ASPIRIN\CAFFEINE
     Dosage: CONSUMPTION
     Route: 065
  2. ENALAPRIL/HYDROCHLOROTHIAZIDE [Suspect]
     Active Substance: ENALAPRIL MALEATE\HYDROCHLOROTHIAZIDE
     Indication: HYPERTENSION
     Route: 065

REACTIONS (1)
  - Hypokalaemia [Recovered/Resolved]
